FAERS Safety Report 16824827 (Version 2)
Quarter: 2019Q4

REPORT INFORMATION
  Report Type: Spontaneous
  Country: US (occurrence: US)
  Receive Date: 20190918
  Receipt Date: 20191115
  Transmission Date: 20200122
  Serious: Yes (Other)
  Sender: FDA-Public Use
  Company Number: US-ASTRAZENECA-2018SF47864

PATIENT
  Age: 52 Year
  Sex: Female
  Weight: 117.9 kg

DRUGS (36)
  1. GLIMEPIRIDE. [Concomitant]
     Active Substance: GLIMEPIRIDE
  2. IBUPROFEN. [Concomitant]
     Active Substance: IBUPROFEN
  3. ESTROVEN [Concomitant]
     Active Substance: DIETARY SUPPLEMENT
  4. NEXIUM [Suspect]
     Active Substance: ESOMEPRAZOLE MAGNESIUM
     Indication: GASTROOESOPHAGEAL REFLUX DISEASE
     Route: 048
     Dates: start: 20010101, end: 201806
  5. NEXIUM [Suspect]
     Active Substance: ESOMEPRAZOLE MAGNESIUM
     Indication: GASTROOESOPHAGEAL REFLUX DISEASE
     Route: 048
     Dates: start: 2001, end: 2011
  6. NEXIUM 24HR [Suspect]
     Active Substance: ESOMEPRAZOLE MAGNESIUM
     Indication: GASTROOESOPHAGEAL REFLUX DISEASE
     Route: 048
     Dates: start: 20010101, end: 201806
  7. PRILOSEC [Suspect]
     Active Substance: OMEPRAZOLE MAGNESIUM
     Indication: GASTROOESOPHAGEAL REFLUX DISEASE
     Route: 048
     Dates: start: 20010101, end: 201806
  8. AZITHROMYCIN ANHYDROUS. [Concomitant]
     Active Substance: AZITHROMYCIN ANHYDROUS
  9. LEVAQUIN [Concomitant]
     Active Substance: LEVOFLOXACIN
  10. TRAMADOL. [Concomitant]
     Active Substance: TRAMADOL
  11. ACETAMINOPHEN. [Concomitant]
     Active Substance: ACETAMINOPHEN
  12. MUPIROCIN. [Concomitant]
     Active Substance: MUPIROCIN
  13. ZANTAC [Concomitant]
     Active Substance: RANITIDINE HYDROCHLORIDE
  14. VITAMIN E [Concomitant]
     Active Substance: .ALPHA.-TOCOPHEROL
  15. TRIAMCINOLON [Concomitant]
  16. CYCLOBENZAPRINE. [Concomitant]
     Active Substance: CYCLOBENZAPRINE
  17. FLUOXETINE [Concomitant]
     Active Substance: FLUOXETINE HYDROCHLORIDE
  18. CEFALEXIN [Concomitant]
     Active Substance: CEPHALEXIN
  19. AMOXICILLIN. [Concomitant]
     Active Substance: AMOXICILLIN
  20. DIAZEPAM. [Concomitant]
     Active Substance: DIAZEPAM
  21. DULERA [Concomitant]
     Active Substance: FORMOTEROL FUMARATE DIHYDRATE\MOMETASONE FUROATE
  22. NEXIUM [Suspect]
     Active Substance: ESOMEPRAZOLE MAGNESIUM
     Indication: GASTROOESOPHAGEAL REFLUX DISEASE
     Route: 065
     Dates: start: 2015, end: 2017
  23. PRILOSEC [Suspect]
     Active Substance: OMEPRAZOLE MAGNESIUM
     Indication: GASTROOESOPHAGEAL REFLUX DISEASE
     Dosage: GENERIC
     Route: 065
     Dates: start: 2012, end: 2018
  24. DOXYCYCLINE. [Concomitant]
     Active Substance: DOXYCYCLINE
  25. NEXIUM 24HR [Suspect]
     Active Substance: ESOMEPRAZOLE MAGNESIUM
     Indication: GASTROOESOPHAGEAL REFLUX DISEASE
     Route: 048
     Dates: start: 2013, end: 2018
  26. LOSARTAN. [Concomitant]
     Active Substance: LOSARTAN
  27. BIOTIN [Concomitant]
     Active Substance: BIOTIN
  28. BENADRYL [Concomitant]
     Active Substance: DIPHENHYDRAMINE HYDROCHLORIDE
  29. ROLAIDS [Concomitant]
     Active Substance: CALCIUM CARBONATE\MAGNESIUM HYDROXIDE
  30. FLUTICASONE. [Concomitant]
     Active Substance: FLUTICASONE
  31. DYAZIDE [Concomitant]
     Active Substance: HYDROCHLOROTHIAZIDE\TRIAMTERENE
  32. ACYCLOVIR. [Concomitant]
     Active Substance: ACYCLOVIR
  33. FLUCONAZOLE. [Concomitant]
     Active Substance: FLUCONAZOLE
  34. IRON [Concomitant]
     Active Substance: IRON
  35. TURMERIC [Concomitant]
     Active Substance: HERBALS\TURMERIC
  36. MELATONIN [Concomitant]
     Active Substance: MELATONIN

REACTIONS (3)
  - Nephrogenic anaemia [Unknown]
  - Renal failure [Unknown]
  - Chronic kidney disease [Not Recovered/Not Resolved]

NARRATIVE: CASE EVENT DATE: 2018
